FAERS Safety Report 24612069 (Version 1)
Quarter: 2024Q4

REPORT INFORMATION
  Report Type: Spontaneous
  Country: US (occurrence: US)
  Receive Date: 20241113
  Receipt Date: 20241113
  Transmission Date: 20250114
  Serious: No
  Sender: CURIUM PHARMACEUTICALS
  Company Number: US-CURIUM-2024000763

PATIENT

DRUGS (4)
  1. TECHNETIUM TC-99M SESTAMIBI KIT [Suspect]
     Active Substance: TECHNETIUM TC-99M SESTAMIBI
     Indication: Scan myocardial perfusion
     Dosage: REST TEST
     Route: 051
     Dates: start: 20241024, end: 20241024
  2. Sestamibi (Draximage) [Concomitant]
     Indication: Scan myocardial perfusion
     Dosage: REST TEST
     Route: 051
     Dates: start: 20241024, end: 20241024
  3. Tc99m (Non-Curium) [Concomitant]
     Indication: Scan myocardial perfusion
     Dosage: REST TEST
     Route: 051
     Dates: start: 20241024, end: 20241024
  4. Tc99m (Non-Curium) [Concomitant]
     Indication: Scan myocardial perfusion
     Dosage: STRESS TEST
     Route: 051
     Dates: start: 20241024, end: 20241024

REACTIONS (3)
  - Nasopharyngitis [Unknown]
  - Chills [Unknown]
  - Tremor [Unknown]

NARRATIVE: CASE EVENT DATE: 20241024
